FAERS Safety Report 15961245 (Version 1)
Quarter: 2019Q1

REPORT INFORMATION
  Report Type: Spontaneous
  Country: CZ (occurrence: CZ)
  Receive Date: 20190214
  Receipt Date: 20190214
  Transmission Date: 20190417
  Serious: Yes (Other)
  Sender: FDA-Public Use
  Company Number: CZ-ACCORD-101579

PATIENT
  Age: 54 Year
  Sex: Female

DRUGS (4)
  1. MIXTARD 30 HM [Concomitant]
     Indication: DIABETES MELLITUS
     Dosage: 22 IU, QD (30 HM )
     Dates: start: 200403
  2. METFORMIN [Suspect]
     Active Substance: METFORMIN HYDROCHLORIDE
     Indication: DIABETES MELLITUS
     Dosage: IN JAN-1991: 850 MG AT NIGHT, FOLLOWED BY DOSE ADJUSTMENTS?IN APR-1994: 2000 MG PER DAY
     Route: 048
  3. METFORMIN [Suspect]
     Active Substance: METFORMIN HYDROCHLORIDE
     Indication: DIABETES MELLITUS
     Dosage: 850 MILLIGRAM DAILY; (ON EVENING)
     Route: 048
     Dates: start: 199101
  4. GLIMEPIRIDE. [Suspect]
     Active Substance: GLIMEPIRIDE
     Indication: DIABETES MELLITUS
     Dosage: 3 MG, UNK
     Route: 048

REACTIONS (3)
  - Flatulence [Recovered/Resolved]
  - Diabetes mellitus [Recovered/Resolved]
  - Diabetes mellitus inadequate control [Recovered/Resolved]

NARRATIVE: CASE EVENT DATE: 200403
